FAERS Safety Report 12440773 (Version 2)
Quarter: 2016Q3

REPORT INFORMATION
  Report Type: Spontaneous
  Country: CH (occurrence: CH)
  Receive Date: 20160606
  Receipt Date: 20160707
  Transmission Date: 20161109
  Serious: Yes (Hospitalization)
  Sender: FDA-Public Use
  Company Number: CH-UCBSA-2016020347

PATIENT
  Age: 87 Year
  Sex: Male

DRUGS (16)
  1. KEPPRA [Suspect]
     Active Substance: LEVETIRACETAM
     Dosage: 750 MG, 2X/DAY (BID), DOSE INCREASED
     Dates: start: 20160211, end: 2016
  2. SINTROM [Suspect]
     Active Substance: ACENOCOUMAROL
     Indication: ANTICOAGULANT THERAPY
     Dosage: UNK
     Route: 048
     Dates: start: 20160303, end: 20160415
  3. ASPIRIN CARDIO [Suspect]
     Active Substance: ASPIRIN
     Indication: PRODUCT USED FOR UNKNOWN INDICATION
     Dosage: 100 MG ONCE DAILY
     Route: 048
     Dates: end: 20160219
  4. LAMICTAL [Concomitant]
     Active Substance: LAMOTRIGINE
     Indication: PRODUCT USED FOR UNKNOWN INDICATION
     Dosage: 25 MG, ONCE DAILY (QD)
     Route: 048
     Dates: start: 20160307, end: 201603
  5. LIQUEMIN [Suspect]
     Active Substance: HEPARIN SODIUM
     Indication: ANTICOAGULANT THERAPY
     Dosage: UNK
     Route: 041
     Dates: start: 20160222, end: 20160307
  6. SIFROL [Suspect]
     Active Substance: PRAMIPEXOLE
     Dosage: 0.26 MG, ONCE DAILY (QD)
     Dates: start: 20160304, end: 201603
  7. SIFROL [Suspect]
     Active Substance: PRAMIPEXOLE
     Dosage: GRADUAL REDUCTION
     Dates: start: 201603, end: 20160308
  8. CLEXANE [Suspect]
     Active Substance: ENOXAPARIN SODIUM
     Dosage: 60 MG, 2X/DAY (BID)
     Dates: start: 20160219
  9. KEPPRA [Suspect]
     Active Substance: LEVETIRACETAM
     Dosage: 250 MG, 2X/DAY (BID)
     Dates: start: 20160307, end: 201603
  10. CLEXANE [Suspect]
     Active Substance: ENOXAPARIN SODIUM
     Indication: PRODUCT USED FOR UNKNOWN INDICATION
     Dosage: 40 MG ONCE DAILY
     Route: 058
     Dates: start: 20160102, end: 201602
  11. KEPPRA [Suspect]
     Active Substance: LEVETIRACETAM
     Indication: EPILEPSY
     Dosage: 500 MG TWICE A DAY
     Route: 048
     Dates: start: 20160209, end: 201602
  12. SIMVASTATIN. [Suspect]
     Active Substance: SIMVASTATIN
     Indication: CEREBROVASCULAR ACCIDENT
     Dosage: 40 MG DAILY DOSE
     Route: 048
     Dates: start: 20160207, end: 20160401
  13. NEXIUM [Concomitant]
     Active Substance: ESOMEPRAZOLE MAGNESIUM
     Indication: PRODUCT USED FOR UNKNOWN INDICATION
     Dosage: 40 MG ONCE DAILY
     Route: 048
     Dates: start: 20160208, end: 20160223
  14. KEPPRA [Suspect]
     Active Substance: LEVETIRACETAM
     Dosage: 500 MG, 2X/DAY (BID),DOSE DECREASED
     Dates: start: 20160302, end: 201603
  15. SIFROL [Suspect]
     Active Substance: PRAMIPEXOLE
     Indication: RESTLESS LEGS SYNDROME
     Dosage: 0.13 MG ONCE DAILY
     Route: 048
     Dates: start: 20160118, end: 2016
  16. PRADIF [Concomitant]
     Active Substance: TAMSULOSIN HYDROCHLORIDE
     Indication: PRODUCT USED FOR UNKNOWN INDICATION
     Dosage: 400 MG ONCE DAILY
     Route: 048
     Dates: start: 20160103

REACTIONS (2)
  - Thrombocytopenia [Recovered/Resolved]
  - Muscle haemorrhage [Recovered/Resolved]

NARRATIVE: CASE EVENT DATE: 20160220
